FAERS Safety Report 4672853-3 (Version None)
Quarter: 2005Q2

REPORT INFORMATION
  Report Type: 
  Country: None (occurrence: None)
  Receive Date: 20050523
  Receipt Date: 20060512
  Transmission Date: 20051028
  Serious: Yes (Death)
  Sender: FDA-Public Use
  Company Number: S05-USA-00886-01

PATIENT
  Age: 28 Year
  Sex: Male
  Weight: 77.5651 kg

DRUGS (11)
  1. CELEXA [Suspect]
     Dosage: 40 MG QD PO
     Route: 048
  2. COMBIVIR [Suspect]
     Indication: HIV INFECTION
     Dates: end: 20040804
  3. VIRACEPT [Suspect]
     Indication: HIV INFECTION
     Dosage: 1250 MG BID PO
     Route: 048
     Dates: end: 20040804
  4. DEPAKOTE [Concomitant]
  5. LIPITOR [Concomitant]
  6. ATIVAN [Concomitant]
  7. ZYPREXA [Concomitant]
  8. NIZORAL [Concomitant]
  9. BENADRYL [Concomitant]
  10. TYLENOL [Concomitant]
  11. MULTI-VITAMIN [Concomitant]

REACTIONS (18)
  - ACCIDENTAL OVERDOSE [None]
  - ATHEROSCLEROSIS [None]
  - BLOOD ALCOHOL INCREASED [None]
  - CEREBRAL ISCHAEMIA [None]
  - DRUG INTERACTION [None]
  - HEPATIC CONGESTION [None]
  - INTRACARDIAC THROMBUS [None]
  - LOSS OF CONSCIOUSNESS [None]
  - LYMPHADENOPATHY [None]
  - NERVOUS SYSTEM DISORDER [None]
  - PERICARDIAL EFFUSION [None]
  - PLEURAL EFFUSION [None]
  - PNEUMONIA [None]
  - RENAL DISORDER [None]
  - SPLENOMEGALY [None]
  - UNRESPONSIVE TO VERBAL STIMULI [None]
  - UPPER RESPIRATORY TRACT INFECTION [None]
  - VENTRICULAR HYPERTROPHY [None]
